FAERS Safety Report 15574893 (Version 1)
Quarter: 2018Q4

REPORT INFORMATION
  Report Type: Report from Study
  Country: PH (occurrence: PH)
  Receive Date: 20181101
  Receipt Date: 20181101
  Transmission Date: 20190205
  Serious: Yes (Hospitalization)
  Sender: FDA-Public Use
  Company Number: PH-OTSUKA-2018_034774

PATIENT
  Age: 50 Year
  Sex: Female

DRUGS (1)
  1. CILOSTAZOL. [Suspect]
     Active Substance: CILOSTAZOL
     Indication: POOR PERIPHERAL CIRCULATION
     Dosage: UNK,(TWICE A DAY)
     Route: 065
     Dates: start: 201810

REACTIONS (4)
  - Vomiting [Unknown]
  - Dizziness [Unknown]
  - Neck pain [Unknown]
  - Blood pressure increased [Unknown]

NARRATIVE: CASE EVENT DATE: 20181024
